FAERS Safety Report 18107540 (Version 2)
Quarter: 2020Q3

REPORT INFORMATION
  Report Type: Report from Study
  Country: FR (occurrence: FR)
  Receive Date: 20200804
  Receipt Date: 20200804
  Transmission Date: 20201103
  Serious: Yes (Other)
  Sender: FDA-Public Use
  Company Number: FR-ROCHE-2651284

PATIENT
  Age: 60 Year
  Sex: Male

DRUGS (5)
  1. LOVENOX [Concomitant]
     Active Substance: ENOXAPARIN SODIUM
  2. TOCILIZUMAB. [Suspect]
     Active Substance: TOCILIZUMAB
     Indication: COVID-19
     Route: 042
     Dates: start: 20200405, end: 20200408
  3. CALCIDOSE (FRANCE) [Concomitant]
     Active Substance: CALCIUM CARBONATE
  4. LASILIX [Concomitant]
     Active Substance: FUROSEMIDE
  5. CEFOTAXIME [Concomitant]
     Active Substance: CEFOTAXIME SODIUM

REACTIONS (4)
  - Pneumonia escherichia [Recovered/Resolved]
  - Pneumonia bacterial [Recovered/Resolved]
  - Staphylococcal infection [Recovered/Resolved]
  - Enterobacter pneumonia [Recovered/Resolved]

NARRATIVE: CASE EVENT DATE: 20200414
